FAERS Safety Report 5677785-X (Version None)
Quarter: 2008Q1

REPORT INFORMATION
  Report Type: 
  Country: None (occurrence: None)
  Receive Date: 20080324
  Receipt Date: 20080314
  Transmission Date: 20080703
  Serious: Yes (Other)
  Sender: FDA-Public Use
  Company Number: US-MERCK-0709USA00197

PATIENT
  Age: 84 Year
  Sex: Male
  Weight: 107 kg

DRUGS (3)
  1. FOSAMAX [Suspect]
     Indication: OSTEOPOROSIS
     Route: 048
     Dates: start: 20030101, end: 20050101
  2. STUDY DRUG (UNSPECIFIED) [Concomitant]
     Route: 065
     Dates: start: 19800101
  3. INSULIN [Concomitant]
     Route: 065
     Dates: start: 19990101

REACTIONS (7)
  - BLOOD CHOLESTEROL INCREASED [None]
  - DEAFNESS [None]
  - DRUG HYPERSENSITIVITY [None]
  - HYPERTENSION [None]
  - OSTEOMYELITIS [None]
  - OSTEONECROSIS [None]
  - VARICOSE VEIN [None]
